FAERS Safety Report 24022790 (Version 3)
Quarter: 2024Q2

REPORT INFORMATION
  Report Type: Report from Study
  Country: AU (occurrence: AU)
  Receive Date: 20240627
  Receipt Date: 20240628
  Transmission Date: 20240715
  Serious: No
  Sender: FDA-Public Use
  Company Number: AU-ROCHE-3210052

PATIENT
  Age: 64 Year
  Sex: Female
  Weight: 61.3 kg

DRUGS (7)
  1. ALECTINIB [Suspect]
     Active Substance: ALECTINIB
     Indication: Lung cancer metastatic
     Route: 048
     Dates: start: 20211224
  2. TELMISARTAN [Concomitant]
     Active Substance: TELMISARTAN
     Indication: Hypertension
     Route: 048
  3. AMLODIPINE [Concomitant]
     Active Substance: AMLODIPINE BESYLATE
     Indication: Hypertension
     Route: 048
  4. ALECTINIB [Concomitant]
     Active Substance: ALECTINIB
     Indication: Lung neoplasm malignant
     Dates: start: 20201119
  5. LORATADINE [Concomitant]
     Active Substance: LORATADINE
     Indication: Contrast media allergy
     Route: 048
     Dates: start: 20221102, end: 20221102
  6. ANTIBIOTICS (UNK INGREDIENTS) [Concomitant]
     Indication: Bronchitis
     Dosage: UNKNOWN
     Route: 048
     Dates: start: 202210, end: 202210
  7. PREDNISOLONE [Concomitant]
     Active Substance: PREDNISOLONE
     Route: 048
     Dates: start: 20221103, end: 20230511

REACTIONS (2)
  - Vitamin D deficiency [Not Recovered/Not Resolved]
  - Iritis [Not Recovered/Not Resolved]

NARRATIVE: CASE EVENT DATE: 20220801
